FAERS Safety Report 5508348-4 (Version None)
Quarter: 2007Q4

REPORT INFORMATION
  Report Type: 
  Country: None (occurrence: None)
  Receive Date: 20071106
  Receipt Date: 20071031
  Transmission Date: 20080405
  Serious: Yes (Other)
  Sender: FDA-Public Use
  Company Number: US-WYE-H00978307

PATIENT
  Sex: Female

DRUGS (8)
  1. TORISEL [Suspect]
     Indication: RENAL CELL CARCINOMA STAGE UNSPECIFIED
     Route: 042
     Dates: start: 20071030, end: 20071030
  2. THEOPHYLLINE [Concomitant]
  3. COLACE [Concomitant]
  4. ALLEGRA [Concomitant]
  5. ADVAIR DISKUS 100/50 [Concomitant]
  6. FENTANYL [Concomitant]
  7. SYNTHROID [Concomitant]
  8. SINGULAIR [Concomitant]

REACTIONS (1)
  - CONVULSION [None]
